FAERS Safety Report 5739481-X (Version None)
Quarter: 2008Q2

REPORT INFORMATION
  Report Type: 
  Country: None (occurrence: None)
  Receive Date: 20080515
  Receipt Date: 20080506
  Transmission Date: 20081010
  Serious: Yes (Other)
  Sender: FDA-Public Use
  Company Number: ZA-PFIZER INC-2008040034

PATIENT
  Age: 72 Year
  Sex: Female

DRUGS (13)
  1. LYRICA [Suspect]
     Route: 048
  2. TEGRETOL [Concomitant]
     Route: 065
  3. TENSTON [Concomitant]
     Route: 065
  4. MST [Concomitant]
     Route: 065
  5. PRATSIOL [Concomitant]
     Route: 065
  6. PHARMAPRESS [Concomitant]
     Route: 065
  7. ZIAK [Concomitant]
     Route: 065
  8. TRILEPTAL [Concomitant]
     Route: 065
  9. ALL OTHER THERAPEUTIC PRODUCTS [Concomitant]
     Route: 065
  10. PREDNISONE TAB [Concomitant]
     Route: 065
  11. ZOCOR [Concomitant]
     Route: 065
  12. TREPILINE [Concomitant]
     Route: 065
  13. CARBAMAZEPINE [Concomitant]
     Route: 065

REACTIONS (4)
  - ABASIA [None]
  - ASTHENIA [None]
  - DYSARTHRIA [None]
  - HYPOTENSION [None]
